FAERS Safety Report 11722534 (Version 2)
Quarter: 2015Q4

REPORT INFORMATION
  Report Type: Report from Study
  Country: BR (occurrence: BR)
  Receive Date: 20151111
  Receipt Date: 20151125
  Transmission Date: 20160304
  Serious: Yes (Hospitalization, Other)
  Sender: FDA-Public Use
  Company Number: PHHY2015BR146698

PATIENT
  Sex: Male
  Weight: 68 kg

DRUGS (3)
  1. EXELON PATCH [Suspect]
     Active Substance: RIVASTIGMINE
     Indication: DEMENTIA ALZHEIMER^S TYPE
     Dosage: PATCH 15 (CM2) (STARTED SINCE 3 YEARS AGO)
     Route: 062
     Dates: start: 201201
  2. PROLOPA [Concomitant]
     Active Substance: BENSERAZIDE\LEVODOPA
     Indication: PRODUCT USED FOR UNKNOWN INDICATION
     Route: 065
  3. RAZAPINA [Concomitant]
     Active Substance: MIRTAZAPINE
     Indication: DEPRESSION
     Dosage: 1 DF, QD (STARTED SINCE 3 YEARS AGO)
     Route: 048

REACTIONS (3)
  - Pulmonary haemorrhage [Recovering/Resolving]
  - Parkinson^s disease [Recovering/Resolving]
  - Pulmonary embolism [Recovering/Resolving]
